FAERS Safety Report 8457775-4 (Version None)
Quarter: 2012Q2

REPORT INFORMATION
  Report Type: 
  Country: None (occurrence: None)
  Receive Date: 20120323
  Receipt Date: 20111110
  Transmission Date: 20120825
  Serious: Yes (Other)
  Sender: FDA-Public Use
  Company Number: 163-21880-11081372

PATIENT
  Age: 79 Year
  Sex: Female

DRUGS (9)
  1. LIDODERM [Concomitant]
  2. OXYCODONE HCL [Concomitant]
  3. NIFEDIPINE [Concomitant]
  4. METFFORMIN HYDROCHLORIDE [Concomitant]
  5. COUMADIN (WARFAIN SODIUM) [Concomitant]
  6. REVLIMID [Suspect]
     Indication: MULTIPLE MYELOMA
     Dosage: 25 MG, DAILY X 21 DAYS, PO; 15 MG, DAILY X  21 DAYS, PO; 10 MG, 1 IN 1 D, PO; 5 MG, 1 IN 1 D, PO
     Route: 048
     Dates: start: 20110301
  7. REVLIMID [Suspect]
     Indication: MULTIPLE MYELOMA
     Dosage: 25 MG, DAILY X 21 DAYS, PO; 15 MG, DAILY X  21 DAYS, PO; 10 MG, 1 IN 1 D, PO; 5 MG, 1 IN 1 D, PO
     Route: 048
     Dates: start: 20110909
  8. REVLIMID [Suspect]
     Indication: MULTIPLE MYELOMA
     Dosage: 25 MG, DAILY X 21 DAYS, PO; 15 MG, DAILY X  21 DAYS, PO; 10 MG, 1 IN 1 D, PO; 5 MG, 1 IN 1 D, PO
     Route: 048
     Dates: start: 20100801
  9. REVLIMID [Suspect]
     Indication: MULTIPLE MYELOMA
     Dosage: 25 MG, DAILY X 21 DAYS, PO; 15 MG, DAILY X  21 DAYS, PO; 10 MG, 1 IN 1 D, PO; 5 MG, 1 IN 1 D, PO
     Route: 048
     Dates: start: 20110801

REACTIONS (2)
  - NEUTROPENIA [None]
  - PANCYTOPENIA [None]
